FAERS Safety Report 15073994 (Version 4)
Quarter: 2018Q3

REPORT INFORMATION
  Report Type: Spontaneous
  Country: JP (occurrence: JP)
  Receive Date: 20180627
  Receipt Date: 20180824
  Transmission Date: 20181010
  Serious: Yes (Other)
  Sender: FDA-Public Use
  Company Number: JP-BAYER-2018-118408

PATIENT
  Age: 45 Year
  Sex: Female

DRUGS (1)
  1. MIRENA [Suspect]
     Active Substance: LEVONORGESTREL
     Indication: ADENOMYOSIS
     Dosage: 20 MCG/24HR, CONT
     Route: 015
     Dates: start: 201503, end: 20180608

REACTIONS (9)
  - White blood cell count increased [Recovered/Resolved]
  - Enterocolitis [Recovered/Resolved]
  - Abdominal distension [None]
  - Female sex hormone level abnormal [None]
  - Weight decreased [None]
  - Abdominal pain [None]
  - Inflammatory marker increased [Recovered/Resolved]
  - Constipation [None]
  - Nausea [None]
